FAERS Safety Report 8773694 (Version 1)
Quarter: 2012Q4

REPORT INFORMATION
  Report Type: 
  Country: DE (occurrence: DE)
  Receive Date: 20120907
  Receipt Date: 20120907
  Transmission Date: 20130627
  Serious: Yes (Other)
  Sender: FDA-Public Use
  Company Number: DE-UCBSA-064897

PATIENT
  Age: 81 Year
  Sex: Female

DRUGS (11)
  1. FERROUS SULFATE GLYCINE [Suspect]
     Dosage: UNKNOWN DOSE
     Route: 048
     Dates: start: 20120830
  2. OMEPRAZOL [Suspect]
     Dosage: UNKNOWN DOSE
     Route: 048
     Dates: start: 20120830
  3. LEVOMEPROMAZINE [Suspect]
     Dosage: 25 MG 3 TABLETS, 75 MG
     Route: 048
     Dates: start: 20120830
  4. METHIONINE [Suspect]
     Dosage: 500 MG, 1 TABLET
     Route: 048
     Dates: start: 20120830
  5. PANTOZOL [Suspect]
     Dosage: 40 MG, 1 TABLET
     Route: 048
     Dates: start: 20120830
  6. ASS [Suspect]
     Dosage: 100 MG, 1 TABLET
     Route: 048
     Dates: start: 20120830
  7. MICARDIS [Suspect]
     Dosage: 40, UNKNOWN DOSE
     Route: 048
     Dates: start: 20120830
  8. CYMBALTA [Suspect]
     Dosage: 30; UNKNOWN DOSE
     Route: 048
     Dates: start: 20120830
  9. LEVOTHYROXINE [Suspect]
     Dosage: 100, 1 TABLET, 0.1 MG TOTAL AMOUNT
     Route: 048
     Dates: start: 20120830
  10. RAMIPRIL [Suspect]
     Dosage: 5/25, 1 TABLET
     Route: 048
     Dates: start: 20120830
  11. LORAZEPAM [Suspect]
     Dosage: 1, 0.5 TABLET, 0.5 MG TOTAL AMOUNT
     Route: 048
     Dates: start: 20120830

REACTIONS (5)
  - Hypotension [Unknown]
  - Slow response to stimuli [Unknown]
  - Dysarthria [Unknown]
  - Dizziness [Unknown]
  - Accidental exposure to product [Unknown]
